FAERS Safety Report 8255724-5 (Version None)
Quarter: 2012Q1

REPORT INFORMATION
  Report Type: 
  Country: None (occurrence: None)
  Receive Date: 20120330
  Receipt Date: 20120319
  Transmission Date: 20120608
  Serious: Yes (Life-Threatening, Hospitalization, Other)
  Sender: FDA-Public Use
  Company Number: 1146929

PATIENT
  Age: 42 Year
  Sex: Male
  Weight: 104 kg

DRUGS (8)
  1. DOXORUBICIN HCL [Suspect]
     Indication: DIFFUSE LARGE B-CELL LYMPHOMA
     Dosage: 110 MG MILLIGRAM(S),INTRAVENOUS (NOT OTHERWISE SPECIFIED)
     Route: 042
     Dates: start: 20111122
  2. CYCLOPHOSPHAMIDE [Suspect]
     Indication: DIFFUSE LARGE B-CELL LYMPHOMA
     Dosage: 1600 MG MILLIGRAM(S)INTRAVENOUS (NOT OTHERWISE SPECIFIED)
     Route: 042
     Dates: start: 20111122
  3. NEUPOGEN [Suspect]
     Indication: DIFFUSE LARGE B-CELL LYMPHOMA
     Dosage: 800 MG MILLIGRAM(S)INTRAVENOUS (NOT OTHERWISE SPECIFIED)
     Route: 042
     Dates: start: 20111123
  4. CITALOPRAM HYDROBROMIDE [Concomitant]
  5. VINCRISTINE SULFATE [Suspect]
     Indication: DIFFUSE LARGE B-CELL LYMPHOMA
     Dosage: 2 MG MILLIGRAM(S), INTRAVENOUS (NOT OTHERWISE SPECIFIED)
     Route: 042
     Dates: start: 20111122
  6. PREDNISOLONE [Suspect]
     Indication: DIFFUSE LARGE B-CELL LYMPHOMA
     Dosage: 60 MG MILLIGRAM(S)
     Dates: start: 20111122
  7. CLOZAPINE [Suspect]
     Indication: SCHIZOPHRENIA
     Dosage: 200 MG MILLIGRAM(S) ( 1 DAY ) ORAL
     Route: 047
     Dates: start: 20100915, end: 20111201
  8. CLOZAPINE [Suspect]
     Indication: SCHIZOPHRENIA
     Dosage: 200 MG MILLIGRAM(S) ( 1 DAY ) ORAL
     Route: 047
     Dates: start: 20111202

REACTIONS (6)
  - WHITE BLOOD CELL COUNT DECREASED [None]
  - LEUKOPENIA [None]
  - SEPSIS [None]
  - DEEP VEIN THROMBOSIS [None]
  - NEUTROPENIA [None]
  - AGRANULOCYTOSIS [None]
